FAERS Safety Report 13571854 (Version 2)
Quarter: 2017Q3

REPORT INFORMATION
  Report Type: Spontaneous
  Country: JP (occurrence: JP)
  Receive Date: 20170523
  Receipt Date: 20170728
  Transmission Date: 20171127
  Serious: Yes (Death, Other)
  Sender: FDA-Public Use
  Company Number: JP-ELI_LILLY_AND_COMPANY-JP201705006718

PATIENT
  Age: 72 Year
  Sex: Male
  Weight: 51 kg

DRUGS (6)
  1. ONETRAM [Concomitant]
     Active Substance: TRAMADOL HYDROCHLORIDE
     Indication: CANCER PAIN
     Dosage: UNK
     Route: 048
     Dates: start: 201603, end: 201702
  2. RANMARK [Concomitant]
     Active Substance: DENOSUMAB
     Indication: METASTASES TO BONE
     Dosage: UNK
     Route: 058
     Dates: start: 20160413, end: 20170214
  3. TAKEPRON [Concomitant]
     Active Substance: LANSOPRAZOLE
     Indication: PROPHYLAXIS
     Dosage: UNK
     Route: 048
     Dates: start: 201603, end: 201702
  4. DOCETAXEL. [Suspect]
     Active Substance: DOCETAXEL
     Indication: ADENOSQUAMOUS CELL LUNG CANCER STAGE IV
     Dosage: 91 MG, UNK
     Route: 042
     Dates: start: 20170307, end: 20170307
  5. CYRAMZA [Suspect]
     Active Substance: RAMUCIRUMAB
     Indication: ADENOSQUAMOUS CELL LUNG CANCER STAGE IV
     Dosage: 508 MG, UNK
     Route: 042
     Dates: start: 20170307, end: 20170307
  6. NIVOLUMAB [Suspect]
     Active Substance: NIVOLUMAB
     Indication: ADENOSQUAMOUS CELL LUNG CANCER
     Dosage: 3 MG/KG, UNK
     Route: 042
     Dates: start: 20170112, end: 20170210

REACTIONS (3)
  - Neutrophil count decreased [Recovered/Resolved]
  - Interstitial lung disease [Fatal]
  - Cytomegalovirus infection [Fatal]

NARRATIVE: CASE EVENT DATE: 20170313
